FAERS Safety Report 5473008-5 (Version None)
Quarter: 2007Q4

REPORT INFORMATION
  Report Type: 
  Country: None (occurrence: None)
  Receive Date: 20071001
  Receipt Date: 20070202
  Transmission Date: 20080405
  Serious: No
  Sender: FDA-Public Use
  Company Number: US-ASTRAZENECA-2007UW02321

PATIENT
  Age: 66 Year
  Sex: Female
  Weight: 72.6 kg

DRUGS (3)
  1. ARIMIDEX [Suspect]
     Route: 048
     Dates: start: 20060101
  2. EFFEXOR [Concomitant]
  3. HEART MEDICATION (UNSPECIFIED) [Concomitant]

REACTIONS (1)
  - TOOTH INJURY [None]
